FAERS Safety Report 24122565 (Version 1)
Quarter: 2024Q3

REPORT INFORMATION
  Report Type: Spontaneous
  Country: US (occurrence: US)
  Receive Date: 20240723
  Receipt Date: 20240723
  Transmission Date: 20241017
  Serious: No
  Sender: AMGEN
  Company Number: US-AMGEN-USASP2024142901

PATIENT
  Sex: Female

DRUGS (3)
  1. RAVICTI [Suspect]
     Active Substance: GLYCEROL PHENYLBUTYRATE
     Indication: Ornithine transcarbamoylase deficiency
     Dosage: 5.2 MILLIGRAM, TID WITH MEALS (1.1 GRAMS/ML 25ML BT LABEL INSTRUCTIONS)
     Route: 048
  2. CARNITOR [Concomitant]
     Active Substance: LEVOCARNITINE
     Dosage: 330 MILLIGRAM
  3. CITRULLINE [Concomitant]
     Active Substance: CITRULLINE
     Dosage: 600 MILLIGRAM

REACTIONS (2)
  - Product dose omission issue [Unknown]
  - Inappropriate schedule of product administration [Unknown]
